FAERS Safety Report 21901795 (Version 1)
Quarter: 2023Q1

REPORT INFORMATION
  Report Type: Other
  Country: GB (occurrence: GB)
  Receive Date: 20230124
  Receipt Date: 20230124
  Transmission Date: 20230417
  Serious: Yes (Death, Disabling, Other)
  Sender: FDA-Public Use
  Company Number: None

PATIENT
  Age: 63 Year
  Sex: Female
  Weight: 40 kg

DRUGS (2)
  1. DEXAMETHASONE [Suspect]
     Active Substance: DEXAMETHASONE
     Indication: Electrocardiogram QT prolonged
     Dosage: UNK
     Route: 065
  2. CIPROFLOXACIN [Concomitant]
     Active Substance: CIPROFLOXACIN
     Indication: Pyrexia
     Dosage: 250 MILLIGRAM, UNKNOWN
     Route: 065
     Dates: start: 20221109

REACTIONS (3)
  - Bacterial infection [Fatal]
  - Medication error [Unknown]
  - Off label use [Unknown]
